FAERS Safety Report 5067166-4 (Version None)
Quarter: 2006Q3

REPORT INFORMATION
  Report Type: 
  Country: None (occurrence: None)
  Receive Date: 20060801
  Receipt Date: 20060717
  Transmission Date: 20061208
  Serious: Yes (Hospitalization)
  Sender: FDA-Public Use
  Company Number: FR-BOEHRINGER INGELHEIM PHARMACEUTICALS, INC.-2006-FF-00622FF

PATIENT
  Age: 82 Year
  Sex: Female

DRUGS (10)
  1. CATAPRES [Suspect]
     Route: 048
     Dates: start: 20051203, end: 20060106
  2. XALACOM [Concomitant]
     Route: 048
  3. VASTEN [Concomitant]
     Route: 048
     Dates: start: 20051128, end: 20060101
  4. COZAAR [Concomitant]
     Route: 048
     Dates: start: 19980101
  5. PRAXILENE [Concomitant]
     Dates: start: 19970101
  6. ISOPTIN [Concomitant]
     Route: 048
     Dates: start: 20000101
  7. SEROPRAM [Concomitant]
     Dates: start: 20050901
  8. ASPIRIN [Concomitant]
     Dates: start: 19980101
  9. FORZAAR [Concomitant]
     Dates: start: 20051122
  10. EVISTA [Concomitant]
     Dates: start: 20050101, end: 20060101

REACTIONS (6)
  - ANTINUCLEAR ANTIBODY POSITIVE [None]
  - CEREBROVASCULAR ACCIDENT [None]
  - DEEP VEIN THROMBOSIS [None]
  - INFECTION [None]
  - PLEURAL EFFUSION [None]
  - PULMONARY EMBOLISM [None]
